FAERS Safety Report 9549778 (Version 1)
Quarter: 2013Q3

REPORT INFORMATION
  Report Type: Spontaneous
  Country: US (occurrence: US)
  Receive Date: 20130924
  Receipt Date: 20130924
  Transmission Date: 20140515
  Serious: No
  Sender: FDA-Public Use
  Company Number: US-ALLERGAN-1310242US

PATIENT
  Age: 64 Year
  Sex: Female

DRUGS (3)
  1. LUMIGAN 0.01% [Suspect]
     Indication: GLAUCOMA
     Dosage: 2 GTT, UNK
     Route: 047
  2. ALPHAGAN P [Concomitant]
     Indication: GLAUCOMA
     Dosage: 2 GTT, UNK
     Route: 047
  3. DORZOLAMIDE                        /01264102/ [Concomitant]
     Indication: GLAUCOMA
     Dosage: 2 GTT, UNK
     Route: 047

REACTIONS (1)
  - Eyelids pruritus [Recovered/Resolved]
